FAERS Safety Report 4701393-8 (Version None)
Quarter: 2005Q2

REPORT INFORMATION
  Report Type: 
  Country: None (occurrence: None)
  Receive Date: 20050627
  Receipt Date: 20050616
  Transmission Date: 20051028
  Serious: Yes (Hospitalization, Other)
  Sender: FDA-Public Use
  Company Number: 2005-04-1185

PATIENT
  Age: 57 Year
  Sex: Female
  Weight: 48 kg

DRUGS (7)
  1. PEG-INTRON [Suspect]
     Indication: HEPATITIS C
     Dosage: 80 MCG QW SUBCUTANEOUS
     Route: 058
     Dates: start: 20050104, end: 20050118
  2. REBETOL [Suspect]
     Indication: HEPATITIS C
     Dosage: SEE IMAGE
     Route: 048
     Dates: start: 20040409, end: 20050123
  3. REBETOL [Suspect]
     Indication: HEPATITIS C
     Dosage: SEE IMAGE
     Route: 048
     Dates: start: 20050104, end: 20050123
  4. REBETOL [Suspect]
     Indication: HEPATITIS C
     Dosage: SEE IMAGE
     Route: 048
     Dates: start: 20040409
  5. INTRON A [Suspect]
     Indication: HEPATITIS C
     Dosage: SEE IMAGE
     Route: 030
     Dates: start: 20040409, end: 20040422
  6. INTRON A [Suspect]
     Indication: HEPATITIS C
     Dosage: SEE IMAGE
     Route: 030
     Dates: start: 20040409, end: 20041005
  7. GASTER TABLETS [Concomitant]

REACTIONS (7)
  - ABSCESS [None]
  - BENIGN COLONIC NEOPLASM [None]
  - C-REACTIVE PROTEIN INCREASED [None]
  - NEUTROPHIL COUNT DECREASED [None]
  - PELVIC ABSCESS [None]
  - PYREXIA [None]
  - WHITE BLOOD CELL COUNT DECREASED [None]
